FAERS Safety Report 11336633 (Version 1)
Quarter: 2015Q3

REPORT INFORMATION
  Report Type: Spontaneous
  Country: ES (occurrence: ES)
  Receive Date: 20150804
  Receipt Date: 20150804
  Transmission Date: 20151125
  Serious: Yes (Other)
  Sender: FDA-Public Use
  Company Number: ES-BAYER-2015-393035

PATIENT
  Age: 57 Year
  Sex: Female

DRUGS (7)
  1. IOPROMIDE [Suspect]
     Active Substance: IOPROMIDE
     Indication: COMPUTERISED TOMOGRAM ABDOMEN
     Dosage: 4 CT SCANS WITH IOPROMIDE NOS
  2. DALTEPARIN [Concomitant]
     Active Substance: DALTEPARIN
  3. IOPROMIDE [Suspect]
     Active Substance: IOPROMIDE
     Indication: COMPUTERISED TOMOGRAM ABDOMEN
     Dosage: CT SCAN WITH IOPROMIDE NOS 5 MONTHS LATER
  4. OMEPRAZOLE. [Concomitant]
     Active Substance: OMEPRAZOLE
  5. PARACETAMOL [Concomitant]
     Active Substance: ACETAMINOPHEN
  6. PIPERACILLIN AND TAZOBACTAM [Concomitant]
     Active Substance: PIPERACILLIN SODIUM\TAZOBACTAM SODIUM
  7. VANCOMYCIN [Concomitant]
     Active Substance: VANCOMYCIN

REACTIONS (1)
  - Drug reaction with eosinophilia and systemic symptoms [None]
